FAERS Safety Report 10657492 (Version 3)
Quarter: 2015Q1

REPORT INFORMATION
  Report Type: Spontaneous
  Country: US (occurrence: US)
  Receive Date: 20141217
  Receipt Date: 20150303
  Transmission Date: 20150720
  Serious: No
  Sender: FDA-Public Use
  Company Number: US-PFIZER INC-2014247727

PATIENT
  Age: 72 Year
  Sex: Male
  Weight: 81.63 kg

DRUGS (13)
  1. REVATIO [Suspect]
     Active Substance: SILDENAFIL CITRATE
     Indication: VEIN DISORDER
     Dosage: 20 MG, 3X/DAY
  2. LEVOTHYROXINE [Concomitant]
     Active Substance: LEVOTHYROXINE
     Indication: THYROID DISORDER
     Dosage: 0.075 MG, 1X/DAY
  3. REVATIO [Suspect]
     Active Substance: SILDENAFIL CITRATE
     Indication: ARTERIAL DISORDER
     Dosage: 20 MG, 2X/DAY
  4. COLCRYS [Concomitant]
     Active Substance: COLCHICINE
     Indication: GOUT
     Dosage: 0.43 MG, 1X/DAY
  5. FERROUS SULFATE [Concomitant]
     Active Substance: FERROUS SULFATE\FERROUS SULFATE, DRIED
     Dosage: 325 MG, 1X/DAY
  6. METOPROLOL [Concomitant]
     Active Substance: METOPROLOL
     Indication: BLOOD PRESSURE ABNORMAL
     Dosage: 12.5 MG, DAILY
  7. POTASSIUM [Concomitant]
     Active Substance: POTASSIUM
     Dosage: 10 MG, 2X/DAY
  8. HYDRALAZINE [Concomitant]
     Active Substance: HYDRALAZINE HYDROCHLORIDE
     Dosage: 25 MG, 2X/DAY
  9. OXYCODONE [Concomitant]
     Active Substance: OXYCODONE
     Indication: PAIN
     Dosage: ^5/325 MG^, AS NEEDED
  10. BUMETANIDE. [Concomitant]
     Active Substance: BUMETANIDE
     Dosage: 1 MG, DAILY
  11. COUMADIN [Concomitant]
     Active Substance: WARFARIN SODIUM
     Indication: ANTICOAGULANT THERAPY
     Dosage: 5 MG, DAILY
  12. VITAMIN B COMPLEX [Concomitant]
     Active Substance: CYANOCOBALAMIN\DEXPANTHENOL\NIACINAMIDE\PYRIDOXINE HYDROCHLORIDE\RIBOFLAVIN 5^-PHOSPHATE SODIUM\THIAMINE HYDROCHLORIDE\VITAMIN B COMPLEX
     Dosage: UNK, 1X/DAY
  13. COUMADIN [Concomitant]
     Active Substance: WARFARIN SODIUM
     Dosage: 7 MG, UNK

REACTIONS (3)
  - Product use issue [Unknown]
  - Intentional product use issue [Unknown]
  - Drug ineffective for unapproved indication [Unknown]
